FAERS Safety Report 7434867-X (Version None)
Quarter: 2011Q2

REPORT INFORMATION
  Report Type: 
  Country: None (occurrence: None)
  Receive Date: 20110425
  Receipt Date: 20110421
  Transmission Date: 20111010
  Serious: Yes (Hospitalization)
  Sender: FDA-Public Use
  Company Number: DE-ROCHE-730565

PATIENT
  Sex: Female
  Weight: 86 kg

DRUGS (8)
  1. EUTHYROX [Concomitant]
     Dosage: REPORTED AS: EUTHYREOX.
  2. TRASTUZUMAB [Suspect]
     Indication: BREAST CANCER
     Dosage: LOADING DOSE: 8 MG/KG, FORM: VIALS
     Route: 042
  3. TRASTUZUMAB [Suspect]
     Dosage: TOTAL DOSE: 516 MG
     Route: 042
     Dates: start: 20100706
  4. OXAZEPAM [Concomitant]
  5. METOPROLOL [Concomitant]
  6. DOCETAXEL [Suspect]
     Indication: BREAST CANCER
     Dosage: TOTAL DOSE: 150 MG, FORM: VIALS, LAST DOSE: 10 SEP 2010
     Route: 042
     Dates: start: 20100706
  7. HYDROCHLOROTHIAZIDE [Concomitant]
  8. CARBOPLATIN [Suspect]
     Indication: BREAST CANCER
     Dosage: DOSE LEVEL: 6 AUC, TOTAL DOSE: 712.9 MG, FORM: VIALS, LAST DOSE 10 SEP 2010
     Route: 042
     Dates: start: 20100706

REACTIONS (1)
  - DEEP VEIN THROMBOSIS [None]
